FAERS Safety Report 10543745 (Version 5)
Quarter: 2015Q4

REPORT INFORMATION
  Report Type: Report from Study
  Country: US (occurrence: US)
  Receive Date: 20141027
  Receipt Date: 20151229
  Transmission Date: 20160304
  Serious: Yes (Hospitalization, Other)
  Sender: FDA-Public Use
  Company Number: US-ALEXION PHARMACEUTICALS INC.-A201404029

PATIENT
  Sex: Male

DRUGS (1)
  1. SOLIRIS [Suspect]
     Active Substance: ECULIZUMAB
     Indication: HAEMOLYTIC URAEMIC SYNDROME
     Dosage: UNK
     Route: 042

REACTIONS (5)
  - Antibody test positive [Unknown]
  - Post procedural discomfort [Unknown]
  - Central venous catheterisation [Unknown]
  - Renal transplant [Unknown]
  - Procedural pain [Unknown]

NARRATIVE: CASE EVENT DATE: 2014
